FAERS Safety Report 5082200-3 (Version None)
Quarter: 2006Q3

REPORT INFORMATION
  Report Type: 
  Country: None (occurrence: None)
  Receive Date: 20060814
  Receipt Date: 20060804
  Transmission Date: 20061208
  Serious: Yes (Hospitalization)
  Sender: FDA-Public Use
  Company Number: 2006-04342

PATIENT
  Age: 56 Year
  Sex: Female
  Weight: 67.1 kg

DRUGS (2)
  1. BACLOFEN [Suspect]
     Indication: DRUG USE FOR UNKNOWN INDICATION
     Dosage: 80 MG, DAILY, ORAL
     Route: 048
     Dates: end: 20060701
  2. COPAXONE [Suspect]
     Indication: MULTIPLE SCLEROSIS
     Dates: start: 20060512

REACTIONS (5)
  - BLADDER DISTENSION [None]
  - DYSURIA [None]
  - HEART RATE DECREASED [None]
  - HYPERTENSION [None]
  - TINNITUS [None]
